FAERS Safety Report 4543058-1 (Version None)
Quarter: 2004Q4

REPORT INFORMATION
  Report Type: 
  Country: None (occurrence: None)
  Receive Date: 20041229
  Receipt Date: 20041229
  Transmission Date: 20050328
  Serious: No
  Sender: FDA-Public Use
  Company Number: None

PATIENT
  Age: 64 Year
  Sex: Female
  Weight: 53.978 kg

DRUGS (5)
  1. REMICADE [Suspect]
     Indication: RHEUMATOID ARTHRITIS
     Dosage: 400MG   8 WEEKS  INTRAVENOU
     Route: 042
     Dates: start: 20030507, end: 20040505
  2. METHOTREXATE [Concomitant]
  3. SULFASALAZINE [Concomitant]
  4. PREDNISONE [Concomitant]
  5. CELEBREX [Concomitant]

REACTIONS (1)
  - BREAST CANCER [None]
